FAERS Safety Report 19459684 (Version 3)
Quarter: 2021Q3

REPORT INFORMATION
  Report Type: Spontaneous
  Country: US (occurrence: US)
  Receive Date: 20210624
  Receipt Date: 20210729
  Transmission Date: 20211014
  Serious: Yes (Death, Hospitalization)
  Sender: FDA-Public Use
  Company Number: US-PARATEK PHARMACEUTICALS, INC.-2021PTK00085

PATIENT
  Age: 99 Year
  Sex: Female
  Weight: 58.05 kg

DRUGS (8)
  1. METHIMAZOLE. [Concomitant]
     Active Substance: METHIMAZOLE
  2. ECOTRIN [Concomitant]
     Active Substance: ASPIRIN
  3. VITAMIN D [Concomitant]
     Active Substance: VITAMIN D NOS
  4. NUZYRA [Suspect]
     Active Substance: OMADACYCLINE
     Indication: GOUT
     Dosage: 450 MG, 1X/DAY
     Dates: start: 202106, end: 202106
  5. SENSIPAR [Concomitant]
     Active Substance: CINACALCET HYDROCHLORIDE
  6. DILTIAZEM. [Concomitant]
     Active Substance: DILTIAZEM
  7. WARFARIN [Concomitant]
     Active Substance: WARFARIN
  8. PRAVACHOL [Concomitant]
     Active Substance: PRAVASTATIN SODIUM

REACTIONS (3)
  - Blood glucose decreased [Unknown]
  - Death [Fatal]
  - Off label use [Recovered/Resolved]

NARRATIVE: CASE EVENT DATE: 202106
